FAERS Safety Report 13350857 (Version 2)
Quarter: 2017Q2

REPORT INFORMATION
  Report Type: Spontaneous
  Country: US (occurrence: US)
  Receive Date: 20170320
  Receipt Date: 20170419
  Transmission Date: 20170830
  Serious: Yes (Death, Hospitalization, Other)
  Sender: FDA-Public Use
  Company Number: US-ALEXION-A201702360

PATIENT
  Age: 27 Day
  Sex: Female
  Weight: 2.71 kg

DRUGS (1)
  1. STRENSIQ [Suspect]
     Active Substance: ASFOTASE ALFA
     Indication: HYPOPHOSPHATASIA
     Dosage: 2 MG/KG, TIW
     Route: 058

REACTIONS (2)
  - Cardio-respiratory arrest [Unknown]
  - Pneumothorax [Fatal]

NARRATIVE: CASE EVENT DATE: 201703
